FAERS Safety Report 9748841 (Version 2)
Quarter: 2013Q4

REPORT INFORMATION
  Report Type: Spontaneous
  Country: US (occurrence: US)
  Receive Date: 20131212
  Receipt Date: 20131212
  Transmission Date: 20140711
  Serious: Yes (Other)
  Sender: FDA-Public Use
  Company Number: US-INCYTE CORPORATION-2013IN001584

PATIENT
  Age: 63 Year
  Sex: Female

DRUGS (7)
  1. JAKAFI [Suspect]
     Indication: MYELOFIBROSIS
     Dosage: 10 MG, BID
     Route: 048
     Dates: start: 20130701, end: 20130805
  2. METOPROLOL [Concomitant]
  3. FERROUS SULFATE [Concomitant]
  4. ZANTAC [Concomitant]
  5. ZYRTEC [Concomitant]
  6. HYDROCODONE [Concomitant]
  7. TYLENOL [Concomitant]

REACTIONS (5)
  - Thrombocytopenia [Unknown]
  - Splenomegaly [Unknown]
  - Dyspnoea [None]
  - Dizziness [Unknown]
  - Anaemia [Unknown]
